FAERS Safety Report 25205021 (Version 1)
Quarter: 2025Q2

REPORT INFORMATION
  Report Type: Spontaneous
  Country: DE (occurrence: DE)
  Receive Date: 20250416
  Receipt Date: 20250416
  Transmission Date: 20250717
  Serious: Yes (Life-Threatening, Hospitalization, Other)
  Sender: PRASCO
  Company Number: DE-Prasco Laboratories-PRAS20250138

PATIENT
  Age: 58 Year
  Sex: Male
  Weight: 70 kg

DRUGS (6)
  1. NITROLINGUAL PUMPSPRAY [Suspect]
     Active Substance: NITROGLYCERIN
     Indication: Suicidal ideation
     Route: 060
     Dates: start: 20250401, end: 20250401
  2. LISINOPRIL [Suspect]
     Active Substance: LISINOPRIL
     Indication: Suicidal ideation
     Route: 065
     Dates: start: 20250401, end: 20250401
  3. BISOPROLOL [Suspect]
     Active Substance: BISOPROLOL
     Indication: Suicidal ideation
     Route: 065
     Dates: start: 20250401, end: 20250401
  4. DOXEPIN [Suspect]
     Active Substance: DOXEPIN
     Indication: Suicidal ideation
     Route: 065
     Dates: start: 20250401, end: 20250401
  5. METFORMIN [Suspect]
     Active Substance: METFORMIN HYDROCHLORIDE
     Indication: Suicidal ideation
     Route: 065
     Dates: start: 20250401, end: 20250401
  6. ATORVASTATIN [Suspect]
     Active Substance: ATORVASTATIN
     Indication: Suicidal ideation
     Route: 065
     Dates: start: 20250401, end: 20250401

REACTIONS (4)
  - Intentional product misuse [Recovered/Resolved]
  - Bradycardia [Recovered/Resolved]
  - Hypotension [Recovered/Resolved]
  - Respiratory failure [Recovered/Resolved]

NARRATIVE: CASE EVENT DATE: 20250401
